FAERS Safety Report 7085711-4 (Version None)
Quarter: 2010Q4

REPORT INFORMATION
  Report Type: 
  Country: None (occurrence: None)
  Receive Date: 20101105
  Receipt Date: 20101026
  Transmission Date: 20110411
  Serious: Yes (Other)
  Sender: FDA-Public Use
  Company Number: US-MYLANLABS-2010S1019713

PATIENT
  Age: 39 Year
  Sex: Female

DRUGS (6)
  1. ZONISAMIDE [Suspect]
     Indication: MIGRAINE
     Route: 048
     Dates: start: 20100909
  2. LISINOPRIL [Concomitant]
     Dosage: HIGH BLOOD PRESSURE
  3. PROZAC [Concomitant]
  4. METFORMIN HCL [Concomitant]
     Indication: POLYCYSTIC OVARIES
  5. LYRICA [Concomitant]
     Indication: FIBROMYALGIA
  6. ATIVAN [Concomitant]
     Indication: AGITATION

REACTIONS (9)
  - ANXIETY [None]
  - DISORIENTATION [None]
  - DIZZINESS [None]
  - HEART RATE IRREGULAR [None]
  - HYPOAESTHESIA [None]
  - HYPOTENSION [None]
  - LOSS OF CONSCIOUSNESS [None]
  - NAUSEA [None]
  - PALPITATIONS [None]
